FAERS Safety Report 5663736-0 (Version None)
Quarter: 2008Q1

REPORT INFORMATION
  Report Type: 
  Country: None (occurrence: None)
  Receive Date: 20080307
  Receipt Date: 20080128
  Transmission Date: 20080703
  Serious: Yes (Hospitalization)
  Sender: FDA-Public Use
  Company Number: 543983

PATIENT
  Age: 63 Year
  Sex: Female

DRUGS (2)
  1. SORIATANE [Suspect]
     Indication: PSORIASIS
     Dosage: 20 MG DAILY ORAL
     Route: 048
     Dates: start: 20070415
  2. MELADININE (METHOXSALEN) [Suspect]
     Indication: PSORIASIS
     Dosage: 1 DOSE FORM 3 PER WEEK ORAL
     Route: 048
     Dates: start: 20071115

REACTIONS (2)
  - ABNORMAL BEHAVIOUR [None]
  - CONFUSIONAL STATE [None]
